FAERS Safety Report 13235787 (Version 1)
Quarter: 2017Q1

REPORT INFORMATION
  Report Type: Spontaneous
  Country: JP (occurrence: JP)
  Receive Date: 20170215
  Receipt Date: 20170215
  Transmission Date: 20170428
  Serious: Yes (Hospitalization)
  Sender: FDA-Public Use
  Company Number: JP-VALIDUS PHARMACEUTICALS LLC-JP-2017VAL000221

PATIENT
  Age: 31 Year
  Sex: Female

DRUGS (2)
  1. FUROSEMIDE. [Suspect]
     Active Substance: FUROSEMIDE
     Indication: URINE OUTPUT DECREASED
     Dosage: UNK
  2. FUROSEMIDE. [Suspect]
     Active Substance: FUROSEMIDE
     Indication: WEIGHT DECREASED

REACTIONS (6)
  - Drug abuse [Unknown]
  - Hypokalaemia [Unknown]
  - Ileus paralytic [Unknown]
  - Abdominal pain [Unknown]
  - Off label use [Unknown]
  - Nephrocalcinosis [Unknown]
